FAERS Safety Report 10558690 (Version 4)
Quarter: 2016Q1

REPORT INFORMATION
  Report Type: Spontaneous
  Country: US (occurrence: US)
  Receive Date: 20141031
  Receipt Date: 20160301
  Transmission Date: 20160525
  Serious: No
  Sender: FDA-Public Use
  Company Number: US-PFIZER INC-2014300181

PATIENT
  Age: 59 Year
  Sex: Female

DRUGS (5)
  1. LYRICA [Suspect]
     Active Substance: PREGABALIN
     Indication: MYOSITIS
  2. LYRICA [Suspect]
     Active Substance: PREGABALIN
     Indication: RHEUMATOID ARTHRITIS
  3. LYRICA [Suspect]
     Active Substance: PREGABALIN
     Indication: FIBROMYALGIA
  4. LYRICA [Suspect]
     Active Substance: PREGABALIN
     Indication: INTERVERTEBRAL DISC DISPLACEMENT
  5. LYRICA [Suspect]
     Active Substance: PREGABALIN
     Indication: MYALGIA
     Dosage: 100 MG (1 CAPSULE), 4X/DAY (50MG; 2 CAPSULE 4 TIMES A DAY)
     Route: 048
     Dates: start: 2012, end: 20151215

REACTIONS (6)
  - Irritability [Unknown]
  - Intentional product use issue [Unknown]
  - Urticaria [Unknown]
  - Wheezing [Unknown]
  - Reaction to colouring [Recovered/Resolved]
  - Pruritus [Unknown]
